FAERS Safety Report 6661554-8 (Version None)
Quarter: 2010Q1

REPORT INFORMATION
  Report Type: 
  Country: None (occurrence: None)
  Receive Date: 20100331
  Receipt Date: 20100319
  Transmission Date: 20100710
  Serious: Yes (Other)
  Sender: FDA-Public Use
  Company Number: JP-PFIZER INC-2010031969

PATIENT
  Age: 67 Year
  Sex: Female

DRUGS (2)
  1. EXEMESTANE [Suspect]
     Dosage: UNK
     Route: 048
  2. FAMOTIDINE [Suspect]
     Dosage: UNK

REACTIONS (1)
  - PLATELET COUNT DECREASED [None]
